FAERS Safety Report 6337339-9 (Version None)
Quarter: 2009Q3

REPORT INFORMATION
  Report Type: 
  Country: None (occurrence: None)
  Receive Date: 20090828
  Receipt Date: 20090828
  Transmission Date: 20100115
  Serious: Yes (Hospitalization)
  Sender: FDA-Public Use
  Company Number: None

PATIENT
  Sex: Female

DRUGS (2)
  1. MIDAZOLAM HCL [Suspect]
     Indication: AGITATION
     Dosage: MIDAZOLAM IV DRIP
     Route: 041
     Dates: start: 20090525, end: 20090602
  2. FLUMAZENIL [Suspect]
     Indication: REVERSAL OF SEDATION
     Dosage: FLUMAZENIL PO
     Route: 048
     Dates: start: 20090602, end: 20090603

REACTIONS (2)
  - HEPATIC ENCEPHALOPATHY [None]
  - UNRESPONSIVE TO STIMULI [None]
